FAERS Safety Report 14532447 (Version 1)
Quarter: 2018Q1

REPORT INFORMATION
  Report Type: Spontaneous
  Country: US (occurrence: US)
  Receive Date: 20180214
  Receipt Date: 20180214
  Transmission Date: 20180509
  Serious: No
  Sender: FDA-Public Use
  Company Number: US-BAUSCH-BL-2017-012694

PATIENT
  Age: 79 Year
  Sex: Male
  Weight: 77.18 kg

DRUGS (2)
  1. METOPROLOL. [Concomitant]
     Active Substance: METOPROLOL
     Indication: PALPITATIONS
     Dosage: ONCE TO TWICE DAILY
     Route: 048
  2. ENALAPRIL MALEATE TABLET [Suspect]
     Active Substance: ENALAPRIL MALEATE
     Indication: HYPERTENSION
     Dosage: ? TABLET IN THE MORNING AND ? TABLET IN THE AFTERNOON
     Route: 048
     Dates: start: 2017

REACTIONS (2)
  - Drug effect incomplete [Unknown]
  - Wrong technique in product usage process [Unknown]

NARRATIVE: CASE EVENT DATE: 201703
